FAERS Safety Report 24100435 (Version 4)
Quarter: 2024Q3

REPORT INFORMATION
  Report Type: Report from Study
  Country: US (occurrence: US)
  Receive Date: 20240717
  Receipt Date: 20240920
  Transmission Date: 20241017
  Serious: Yes (Other)
  Sender: ABBVIE
  Company Number: US-ABBVIE-5690396

PATIENT
  Age: 31 Year
  Sex: Male

DRUGS (2)
  1. RINVOQ [Suspect]
     Active Substance: UPADACITINIB
     Indication: Colitis ulcerative
     Route: 048
     Dates: start: 202204
  2. RINVOQ [Suspect]
     Active Substance: UPADACITINIB
     Indication: Colitis ulcerative
     Route: 048
     Dates: start: 20231223

REACTIONS (14)
  - Intestinal haemorrhage [Recovered/Resolved]
  - Haemorrhage [Recovering/Resolving]
  - Intestinal haemorrhage [Recovered/Resolved]
  - Colitis ulcerative [Recovered/Resolved]
  - Stress at work [Unknown]
  - Pain [Recovering/Resolving]
  - COVID-19 [Recovered/Resolved]
  - Colitis ulcerative [Recovered/Resolved]
  - Weight increased [Recovered/Resolved]
  - Large intestinal haemorrhage [Unknown]
  - Acne [Unknown]
  - Weight increased [Recovered/Resolved]
  - Gastrointestinal disorder [Unknown]
  - Weight increased [Recovered/Resolved]

NARRATIVE: CASE EVENT DATE: 20220901
